FAERS Safety Report 24760967 (Version 1)
Quarter: 2024Q4

REPORT INFORMATION
  Report Type: Spontaneous
  Country: CH (occurrence: CH)
  Receive Date: 20241220
  Receipt Date: 20241220
  Transmission Date: 20250115
  Serious: Yes (Life-Threatening, Hospitalization, Other)
  Sender: SANDOZ
  Company Number: None

PATIENT
  Age: 72 Year
  Sex: Male
  Weight: 95 kg

DRUGS (11)
  1. ELTROXIN LF [Concomitant]
     Indication: Hypothyroidism
     Dosage: 0.025 MG N/A DOSE EVERY 1 DAY
     Route: 048
  2. FRESUBIN [Concomitant]
     Active Substance: AMINO ACIDS\DEXTROSE\ELECTROLYTES NOS\SOYBEAN OIL\VITAMINS
     Indication: Product used for unknown indication
     Dosage: 0.5 CELLS N/A DOSE EVERY 6 HOURS
     Route: 048
  3. KCL [Concomitant]
     Active Substance: POTASSIUM CHLORIDE
     Indication: Product used for unknown indication
     Dosage: 40 MMOL N/A DOSE EVERY 1 DAY
     Route: 040
  4. POTASSIUM CHLORIDE [Concomitant]
     Active Substance: POTASSIUM CHLORIDE
     Indication: Product used for unknown indication
     Dosage: 1 CELLS N/A DOSE EVERY 8 HOUR
     Route: 048
  5. SODIUM BICARBONATE [Concomitant]
     Active Substance: SODIUM BICARBONATE
     Indication: Metabolic acidosis
     Dosage: 1 CELLS N/A DOSE EVERY 1 DAY
     Route: 048
     Dates: start: 202406
  6. PARACETAMOL SPIRIG HC [Concomitant]
     Indication: Product used for unknown indication
     Dosage: 500 MG N/A DOSE EVERY 1 DAY
     Route: 048
  7. ROCEPHIN [Concomitant]
     Active Substance: CEFTRIAXONE SODIUM
     Indication: Product used for unknown indication
     Dosage: 2 G N/A DOSE EVERY 1 DAY
     Route: 040
  8. BISOPROLOL [Interacting]
     Active Substance: BISOPROLOL
     Indication: Atrial fibrillation
     Dosage: 2.5 MG N/A DOSE EVERY N/A TOTAL
     Route: 048
     Dates: start: 20240625, end: 20240625
  9. ALBUTEROL SULFATE\IPRATROPIUM BROMIDE [Interacting]
     Active Substance: ALBUTEROL SULFATE\IPRATROPIUM BROMIDE
     Indication: Product used for unknown indication
     Dosage: 1 CELLS N/A DOSE EVERY 8 HOUR
     Route: 055
  10. PANTOPRAZOLE SODIUM [Interacting]
     Active Substance: PANTOPRAZOLE SODIUM
     Indication: Product used for unknown indication
     Dosage: 40 MG N/A DOSE EVERY 1 DAY
     Route: 048
  11. TRELEGY ELLIPTA [Interacting]
     Active Substance: FLUTICASONE FUROATE\UMECLIDINIUM BROMIDE\VILANTEROL TRIFENATATE
     Indication: Chronic obstructive pulmonary disease
     Dosage: 92 UG FLUTICASONE FUORATE, 55 ?G UMECLIDINIUM, 22  ?G VILANTEROL PER SPRAY SHOT
     Route: 055

REACTIONS (3)
  - Ileus paralytic [Not Recovered/Not Resolved]
  - Aspiration [Not Recovered/Not Resolved]
  - Sepsis [Not Recovered/Not Resolved]

NARRATIVE: CASE EVENT DATE: 20240601
